FAERS Safety Report 10730064 (Version 6)
Quarter: 2015Q2

REPORT INFORMATION
  Report Type: Spontaneous
  Country: US (occurrence: US)
  Receive Date: 20150122
  Receipt Date: 20150618
  Transmission Date: 20150821
  Serious: Yes (Hospitalization, Other)
  Sender: FDA-Public Use
  Company Number: US-009507513-1105USA02741

PATIENT
  Sex: Female
  Weight: 51.25 kg

DRUGS (3)
  1. VITAMINS (UNSPECIFIED) [Concomitant]
     Active Substance: VITAMINS
     Dosage: 1 DF, QD
     Dates: start: 1973
  2. ALENDRONATE SODIUM. [Suspect]
     Active Substance: ALENDRONATE SODIUM
     Indication: BONE DENSITY DECREASED
     Dosage: 70 MG, UNK
     Route: 048
     Dates: start: 20080409, end: 2009
  3. FOSAMAX [Suspect]
     Active Substance: ALENDRONATE SODIUM
     Indication: BONE DENSITY DECREASED
     Dosage: 70 MG, QW
     Route: 048
     Dates: start: 20040408, end: 20090520

REACTIONS (18)
  - Femur fracture [Recovered/Resolved]
  - Anaemia postoperative [Unknown]
  - Intramedullary rod insertion [Recovered/Resolved]
  - Hospitalisation [Unknown]
  - Osteoarthritis [Unknown]
  - Femur fracture [Recovered/Resolved]
  - Inappropriate schedule of drug administration [Unknown]
  - Fall [Unknown]
  - Hyponatraemia [Unknown]
  - Spinal osteoarthritis [Unknown]
  - Skeletal injury [Unknown]
  - Osteopenia [Unknown]
  - Hypertension [Unknown]
  - Hypomagnesaemia [Unknown]
  - Intramedullary rod insertion [Recovered/Resolved]
  - Dyslipidaemia [Unknown]
  - Osteoporosis [Unknown]
  - Restless legs syndrome [Unknown]

NARRATIVE: CASE EVENT DATE: 20040408
